FAERS Safety Report 6103420-2 (Version None)
Quarter: 2009Q1

REPORT INFORMATION
  Report Type: 
  Country: None (occurrence: None)
  Receive Date: 20090305
  Receipt Date: 20090224
  Transmission Date: 20090719
  Serious: Yes (Other)
  Sender: FDA-Public Use
  Company Number: PHHY2008DE31691

PATIENT
  Age: 30 Year
  Sex: Female

DRUGS (4)
  1. MYFORTIC [Suspect]
     Indication: SCLERODERMA
     Dosage: 720 MG, BID
     Route: 048
     Dates: start: 20080716
  2. PREDNISOLONE [Concomitant]
     Indication: SCLERODERMA
     Dosage: 15 MG, QD
     Route: 048
  3. PREDNISOLONE [Concomitant]
     Dosage: 5 MG, QD
     Route: 048
  4. IDEOS [Concomitant]

REACTIONS (8)
  - ABDOMINAL PAIN [None]
  - ABDOMINAL PAIN UPPER [None]
  - ANOREXIA [None]
  - FLATULENCE [None]
  - GASTRITIS [None]
  - INFECTION [None]
  - LEUKOCYTOSIS [None]
  - LYMPHOPENIA [None]
